FAERS Safety Report 9889132 (Version 2)
Quarter: 2014Q2

REPORT INFORMATION
  Report Type: Report from Study
  Country: US (occurrence: US)
  Receive Date: 20140211
  Receipt Date: 20140505
  Transmission Date: 20141212
  Serious: Yes (Hospitalization)
  Sender: FDA-Public Use
  Company Number: US-JNJFOC-20140202793

PATIENT
  Age: 62 Year
  Sex: Female
  Weight: 122.47 kg

DRUGS (12)
  1. REMICADE [Suspect]
     Indication: RHEUMATOID ARTHRITIS
     Route: 042
     Dates: start: 2013
  2. METHOTREXATE [Concomitant]
     Indication: RHEUMATOID ARTHRITIS
     Dosage: DOSE: 2.5 MG
     Route: 048
  3. DAYPRO [Concomitant]
     Indication: TORTICOLLIS
     Route: 065
  4. DAYPRO [Concomitant]
     Indication: ROTATOR CUFF SYNDROME
     Route: 065
  5. CYMBALTA [Concomitant]
     Indication: FIBROMYALGIA
     Route: 065
  6. CYMBALTA [Concomitant]
     Indication: ANXIETY
     Route: 065
  7. CYMBALTA [Concomitant]
     Indication: DEPRESSION
     Route: 065
  8. ASPIRIN [Concomitant]
     Indication: THROMBOSIS
     Route: 048
     Dates: start: 2011
  9. OXYBUTYNIN [Concomitant]
     Indication: MICTURITION URGENCY
     Route: 065
     Dates: start: 2012
  10. FOLIC ACID [Concomitant]
     Indication: PROPHYLAXIS
     Route: 048
  11. LEUCOVORIN [Concomitant]
     Indication: NAUSEA
     Route: 065
  12. LEUCOVORIN [Concomitant]
     Indication: ALOPECIA
     Route: 065

REACTIONS (3)
  - Intestinal perforation [Not Recovered/Not Resolved]
  - Diverticular perforation [Recovered/Resolved]
  - Infection [Unknown]
